FAERS Safety Report 6708848-5 (Version None)
Quarter: 2010Q2

REPORT INFORMATION
  Report Type: 
  Country: None (occurrence: None)
  Receive Date: 20100503
  Receipt Date: 20100503
  Transmission Date: 20101027
  Serious: No
  Sender: FDA-Public Use
  Company Number: None

PATIENT
  Sex: Female
  Weight: 72.5755 kg

DRUGS (1)
  1. SUCCINYLCHOLINE CHLORIDE [Suspect]
     Indication: FOREIGN BODY
     Dosage: ONCE SEE ATTACHED PG 1
     Dates: start: 20100325

REACTIONS (5)
  - CHEST DISCOMFORT [None]
  - DELAYED RECOVERY FROM ANAESTHESIA [None]
  - DIPLEGIA [None]
  - MUSCLE TIGHTNESS [None]
  - MUSCULOSKELETAL STIFFNESS [None]
